FAERS Safety Report 14775868 (Version 2)
Quarter: 2018Q2

REPORT INFORMATION
  Report Type: Spontaneous
  Country: US (occurrence: US)
  Receive Date: 20180418
  Receipt Date: 20180423
  Transmission Date: 20180711
  Serious: Yes (Death, Other)
  Sender: FDA-Public Use
  Company Number: US-PFIZER INC-2018152572

PATIENT
  Age: 4 Year
  Sex: Female

DRUGS (8)
  1. DEXAMETHASONE. [Suspect]
     Active Substance: DEXAMETHASONE
     Indication: GLIOBLASTOMA MULTIFORME
     Dosage: 12 MG/M2, DAILY
     Route: 048
     Dates: start: 1974
  2. VINCRISTINE SULFATE. [Suspect]
     Active Substance: VINCRISTINE SULFATE
     Indication: GLIOBLASTOMA MULTIFORME
     Dosage: 2 MG/M2, WEEKLY (5 DOSES)
     Route: 042
     Dates: start: 1974
  3. METHOTREXATE SODIUM. [Suspect]
     Active Substance: METHOTREXATE SODIUM
     Dosage: 12 MG/M2, MONTHLY
     Route: 037
  4. VINCRISTINE SULFATE. [Suspect]
     Active Substance: VINCRISTINE SULFATE
     Dosage: 2 MG/M2, MONTHLY
     Route: 042
  5. METHOTREXATE SODIUM. [Suspect]
     Active Substance: METHOTREXATE SODIUM
     Indication: GLIOBLASTOMA MULTIFORME
     Dosage: 12 MG/M2, 2X/WEEK (6 DOSES)
     Route: 037
     Dates: start: 1974, end: 1974
  6. BICNU [Suspect]
     Active Substance: CARMUSTINE
     Indication: GLIOBLASTOMA MULTIFORME
     Dosage: 150 MG/M2, MONTHLY
     Route: 042
     Dates: start: 1974
  7. CITROVORUM FACTOR [Suspect]
     Active Substance: LEUCOVORIN
     Indication: GLIOBLASTOMA MULTIFORME
     Dosage: 12 MG/M2, UNK
     Route: 030
     Dates: start: 1974
  8. DEXAMETHASONE. [Suspect]
     Active Substance: DEXAMETHASONE
     Dosage: 8 MG, DAILY

REACTIONS (1)
  - Acute myeloid leukaemia [Fatal]
